FAERS Safety Report 17226553 (Version 1)
Quarter: 2020Q1

REPORT INFORMATION
  Report Type: Spontaneous
  Country: US (occurrence: US)
  Receive Date: 20200102
  Receipt Date: 20200102
  Transmission Date: 20200409
  Serious: Yes (Hospitalization)
  Sender: FDA-Public Use
  Company Number: US-ACELLA PHARMACEUTICALS, LLC-2078445

PATIENT
  Age: 3 Year
  Sex: Female

DRUGS (3)
  1. DIHYDROCODEINE [Suspect]
     Active Substance: DIHYDROCODEINE
     Route: 048
  2. HYDROCODONE BITARTRATE AND CHLORPHENIRAMINE MALEATE [Suspect]
     Active Substance: CHLORPHENIRAMINE MALEATE\HYDROCODONE BITARTRATE
     Indication: ACCIDENTAL EXPOSURE TO PRODUCT
     Route: 048
  3. HYDROMORPHONE HCL [Suspect]
     Active Substance: HYDROMORPHONE HYDROCHLORIDE
     Route: 048

REACTIONS (3)
  - Brain herniation [Recovered/Resolved with Sequelae]
  - Mental status changes [Recovered/Resolved]
  - Hydrocephalus [Recovered/Resolved with Sequelae]
